FAERS Safety Report 11833705 (Version 2)
Quarter: 2015Q4

REPORT INFORMATION
  Report Type: Spontaneous
  Country: ES (occurrence: ES)
  Receive Date: 20151214
  Receipt Date: 20151230
  Transmission Date: 20160305
  Serious: Yes (Death, Life-Threatening, Hospitalization, Other)
  Sender: FDA-Public Use
  Company Number: ES-ABBVIE-15P-144-1517274-00

PATIENT
  Age: 67 Year
  Sex: Female

DRUGS (9)
  1. EXVIERA [Suspect]
     Active Substance: DASABUVIR
     Indication: HEPATITIS C
     Route: 048
     Dates: start: 20151125, end: 20151203
  2. VIEKIRAX [Suspect]
     Active Substance: OMBITASVIR\PARITAPREVIR\RITONAVIR
     Indication: HEPATITIS C
     Route: 048
     Dates: start: 20151125, end: 20151203
  3. RIBAVIRIN. [Suspect]
     Active Substance: RIBAVIRIN
     Indication: HEPATITIS C
     Dosage: 2-0-3
     Route: 048
     Dates: start: 20151125, end: 20151203
  4. ALDACTONE [Concomitant]
     Active Substance: SPIRONOLACTONE
     Indication: PRODUCT USED FOR UNKNOWN INDICATION
     Route: 048
  5. METFORMIN [Concomitant]
     Active Substance: METFORMIN HYDROCHLORIDE
     Indication: DIABETES MELLITUS
     Route: 048
  6. FERBISOL [Concomitant]
     Indication: PRODUCT USED FOR UNKNOWN INDICATION
     Route: 048
  7. SEGURIL [Concomitant]
     Active Substance: FUROSEMIDE
     Indication: PRODUCT USED FOR UNKNOWN INDICATION
     Route: 048
  8. NOVONORM [Concomitant]
     Active Substance: REPAGLINIDE
     Indication: DIABETES MELLITUS
     Route: 048
  9. PLENDIL [Concomitant]
     Active Substance: FELODIPINE
     Indication: PRODUCT USED FOR UNKNOWN INDICATION
     Route: 048

REACTIONS (12)
  - Renal failure [Fatal]
  - Cough [Not Recovered/Not Resolved]
  - Decreased appetite [Not Recovered/Not Resolved]
  - Hepatic encephalopathy [Fatal]
  - Ascites [Unknown]
  - Asthenia [Not Recovered/Not Resolved]
  - Productive cough [Not Recovered/Not Resolved]
  - Jaundice [Unknown]
  - Vision blurred [Unknown]
  - Acute hepatic failure [Fatal]
  - Anaemia [Fatal]
  - Metabolic acidosis [Fatal]

NARRATIVE: CASE EVENT DATE: 20151127
